FAERS Safety Report 12700529 (Version 1)
Quarter: 2016Q3

REPORT INFORMATION
  Report Type: Spontaneous
  Country: US (occurrence: US)
  Receive Date: 20160830
  Receipt Date: 20160830
  Transmission Date: 20161109
  Serious: Yes (Disabling, Other)
  Sender: FDA-Public Use
  Company Number: US-TEVA-689161USA

PATIENT
  Age: 57 Year
  Sex: Female
  Weight: 69.4 kg

DRUGS (5)
  1. FEMARA [Suspect]
     Active Substance: LETROZOLE
     Indication: BREAST CANCER STAGE IV
     Dosage: ONCE DAILY IN MORNING
     Route: 065
  2. ZOLPIDEM [Concomitant]
     Active Substance: ZOLPIDEM\ZOLPIDEM TARTRATE
     Route: 048
  3. OXYCODONE [Concomitant]
     Active Substance: OXYCODONE
     Route: 048
  4. IBRANCE [Suspect]
     Active Substance: PALBOCICLIB
     Indication: BREAST CANCER STAGE IV
     Dosage: 125 MILLIGRAM DAILY;
     Route: 048
     Dates: start: 201607
  5. WARFARIN [Suspect]
     Active Substance: WARFARIN
     Route: 065
     Dates: start: 2013

REACTIONS (19)
  - Bone pain [Unknown]
  - Pleural neoplasm [Not Recovered/Not Resolved]
  - Hyperhidrosis [Unknown]
  - Uterine polyp [Recovered/Resolved]
  - Fatigue [Unknown]
  - Prothrombin time prolonged [Unknown]
  - Chills [Unknown]
  - Breast cancer stage IV [Not Recovered/Not Resolved]
  - Lung neoplasm malignant [Not Recovered/Not Resolved]
  - Haemoglobin decreased [Unknown]
  - Neoplasm progression [Unknown]
  - Body temperature increased [Recovered/Resolved]
  - Headache [Unknown]
  - Uterine leiomyoma [Recovered/Resolved]
  - Night sweats [Unknown]
  - Pulmonary embolism [Unknown]
  - Breast cancer metastatic [Not Recovered/Not Resolved]
  - Palpitations [Unknown]
  - Coagulopathy [Unknown]

NARRATIVE: CASE EVENT DATE: 201606
